FAERS Safety Report 8261353-X (Version None)
Quarter: 2012Q2

REPORT INFORMATION
  Report Type: 
  Country: None (occurrence: None)
  Receive Date: 20120405
  Receipt Date: 20120401
  Transmission Date: 20120825
  Serious: Yes (Other)
  Sender: FDA-Public Use
  Company Number: US-PFIZER INC-2012082377

PATIENT
  Sex: Female
  Weight: 63.492 kg

DRUGS (3)
  1. ADVIL MIGRAINE LIQUI-GELS [Suspect]
     Indication: HEADACHE
     Dosage: 200 MG, AS NEEDED
     Route: 048
     Dates: start: 20120401, end: 20120401
  2. IBUPROFEN [Concomitant]
     Indication: HEADACHE
     Dosage: UNK
  3. VITAMIN TAB [Concomitant]
     Dosage: UNK

REACTIONS (5)
  - PHARYNGEAL OEDEMA [None]
  - DYSPNOEA [None]
  - FEELING JITTERY [None]
  - VOMITING [None]
  - WHEEZING [None]
